FAERS Safety Report 11754120 (Version 2)
Quarter: 2015Q4

REPORT INFORMATION
  Report Type: Report from Study
  Country: AT (occurrence: AT)
  Receive Date: 20151119
  Receipt Date: 20151130
  Transmission Date: 20160304
  Serious: Yes (Death, Life-Threatening)
  Sender: FDA-Public Use
  Company Number: PHHO2015AT019142

PATIENT
  Age: 68 Year
  Sex: Male
  Weight: 119 kg

DRUGS (1)
  1. RLX030 [Suspect]
     Active Substance: SERELAXIN
     Indication: CARDIAC FAILURE ACUTE
     Dosage: 10 ML, QH
     Route: 042
     Dates: start: 20151103, end: 20151105

REACTIONS (2)
  - Cardiac failure [Fatal]
  - Seizure [Fatal]

NARRATIVE: CASE EVENT DATE: 20151107
